FAERS Safety Report 18383625 (Version 1)
Quarter: 2020Q4

REPORT INFORMATION
  Report Type: Spontaneous
  Country: BE (occurrence: BE)
  Receive Date: 20201014
  Receipt Date: 20201014
  Transmission Date: 20210114
  Serious: Yes (Disabling)
  Sender: FDA-Public Use
  Company Number: BE-BIOGEN-2020BI00934813

PATIENT
  Age: 47 Year

DRUGS (4)
  1. TADALAFIL. [Concomitant]
     Active Substance: TADALAFIL
     Indication: MULTIPLE SCLEROSIS
     Route: 048
     Dates: start: 20190519
  2. CIALIS [Concomitant]
     Active Substance: TADALAFIL
     Indication: MULTIPLE SCLEROSIS
     Route: 048
     Dates: start: 20150902, end: 201905
  3. SIFROL [Concomitant]
     Active Substance: PRAMIPEXOLE
     Indication: RESTLESS LEGS SYNDROME
     Route: 048
     Dates: start: 20170327
  4. TECFIDERA [Suspect]
     Active Substance: DIMETHYL FUMARATE
     Indication: RELAPSING MULTIPLE SCLEROSIS
     Route: 065

REACTIONS (17)
  - Urinary tract infection [Recovered/Resolved]
  - Tension headache [Not Recovered/Not Resolved]
  - Gastroenteritis [Recovered/Resolved]
  - Pain [Not Recovered/Not Resolved]
  - Pulpless tooth [Recovered/Resolved]
  - Non-cardiac chest pain [Not Recovered/Not Resolved]
  - Gastroenteritis viral [Recovered/Resolved]
  - Abdominal pain upper [Unknown]
  - Calculus urinary [Recovered/Resolved]
  - Headache [Recovered/Resolved]
  - Rhinitis [Recovered/Resolved]
  - Lung neoplasm malignant [Not Recovered/Not Resolved]
  - Gastrooesophageal reflux disease [Not Recovered/Not Resolved]
  - Fall [Recovered/Resolved]
  - Contusion [Recovered/Resolved]
  - Tooth infection [Recovered/Resolved]
  - Cough [Recovered/Resolved]

NARRATIVE: CASE EVENT DATE: 20190203
